FAERS Safety Report 10615688 (Version 1)
Quarter: 2014Q4

REPORT INFORMATION
  Report Type: Spontaneous
  Country: US (occurrence: None)
  Receive Date: 20141125
  Receipt Date: 20141125
  Transmission Date: 20150529
  Serious: No
  Sender: FDA-Public Use
  Company Number: None

PATIENT
  Age: 27 Year
  Sex: Male
  Weight: 65.3 kg

DRUGS (1)
  1. INVEGA SUSTENNA [Suspect]
     Active Substance: PALIPERIDONE PALMITATE
     Indication: MENTAL DISORDER
     Dosage: 1 INJECTION  LOADING DOSE  INTRAMUSCULAR
     Route: 030
     Dates: start: 20141118, end: 20141118

REACTIONS (1)
  - Injection site swelling [None]

NARRATIVE: CASE EVENT DATE: 20141124
